FAERS Safety Report 25125836 (Version 1)
Quarter: 2025Q1

REPORT INFORMATION
  Report Type: Report from Study
  Country: US (occurrence: US)
  Receive Date: 20250326
  Receipt Date: 20250326
  Transmission Date: 20250408
  Serious: Yes (Hospitalization)
  Sender: BIOGEN
  Company Number: US-BIOGEN-2025BI01305097

PATIENT
  Sex: Female

DRUGS (1)
  1. VUMERITY [Suspect]
     Active Substance: DIROXIMEL FUMARATE
     Indication: Multiple sclerosis
     Route: 050
     Dates: start: 20210702

REACTIONS (5)
  - Urinary tract infection [Unknown]
  - Influenza [Unknown]
  - Pneumonia [Unknown]
  - Pneumothorax [Unknown]
  - Hepatic enzyme increased [Unknown]
